FAERS Safety Report 20387661 (Version 1)
Quarter: 2022Q1

REPORT INFORMATION
  Report Type: Spontaneous
  Country: US (occurrence: US)
  Receive Date: 20220127
  Receipt Date: 20220127
  Transmission Date: 20220423
  Serious: No
  Sender: FDA-Public Use
  Company Number: US-ALLERGAN-2138389US

PATIENT
  Sex: Female

DRUGS (4)
  1. BOTOX [Suspect]
     Active Substance: ONABOTULINUMTOXINA
     Indication: Migraine
     Dosage: UNK, SINGLE
  2. COVID-19 VACCINE [Concomitant]
     Dosage: UNK
     Dates: start: 20210216, end: 20210216
  3. COVID-19 VACCINE [Concomitant]
     Dosage: UNK
     Dates: start: 20210316, end: 20210316
  4. AIMOVIG [Concomitant]
     Active Substance: ERENUMAB-AOOE

REACTIONS (1)
  - Drug ineffective [Unknown]
